FAERS Safety Report 6220190-8 (Version None)
Quarter: 2009Q2

REPORT INFORMATION
  Report Type: 
  Country: None (occurrence: None)
  Receive Date: 20090605
  Receipt Date: 20090526
  Transmission Date: 20091009
  Serious: Yes (Other)
  Sender: FDA-Public Use
  Company Number: ADE2009-0643

PATIENT
  Age: 64 Year
  Sex: Male

DRUGS (1)
  1. MELOXICAM [Suspect]
     Indication: BACK PAIN
     Dosage: 15MG, DAILY,

REACTIONS (6)
  - AUTOIMMUNE HEPATITIS [None]
  - BLOOD IMMUNOGLOBULIN G INCREASED [None]
  - BLOOD IRON INCREASED [None]
  - LABORATORY TEST ABNORMAL [None]
  - SERUM FERRITIN INCREASED [None]
  - SPLENOMEGALY [None]
